FAERS Safety Report 12089111 (Version 2)
Quarter: 2016Q1

REPORT INFORMATION
  Report Type: Report from Study
  Country: US (occurrence: US)
  Receive Date: 20160218
  Receipt Date: 20160328
  Transmission Date: 20160526
  Serious: Yes (Other)
  Sender: FDA-Public Use
  Company Number: US-JNJFOC-20160214753

PATIENT
  Sex: Male

DRUGS (30)
  1. ZYRTEC [Concomitant]
     Active Substance: CETIRIZINE HYDROCHLORIDE
  2. COREG [Concomitant]
     Active Substance: CARVEDILOL
  3. PULMICORT TURBUHALER [Concomitant]
     Active Substance: BUDESONIDE
  4. PROBIOTICS NOS [Concomitant]
     Active Substance: PROBIOTICS NOS
  5. LISINOPRIL. [Concomitant]
     Active Substance: LISINOPRIL
  6. AMBIEN [Concomitant]
     Active Substance: ZOLPIDEM TARTRATE
  7. CARNITINE [Concomitant]
     Active Substance: CARNITINE
  8. CRATAEGUS SPP. EXTRACT [Concomitant]
  9. FUROSEMIDE. [Concomitant]
     Active Substance: FUROSEMIDE
  10. VITAMIN D [Concomitant]
     Active Substance: CHOLECALCIFEROL
  11. ROBITUSSIN (GUAIFENESIN) [Concomitant]
     Active Substance: GUAIFENESIN
  12. HYDROCHLOROTHIAZIDE W/METHYLDOPA [Concomitant]
  13. DIGOXIN. [Concomitant]
     Active Substance: DIGOXIN
  14. NITROSTAT [Concomitant]
     Active Substance: NITROGLYCERIN
  15. FOLIC ACID. [Concomitant]
     Active Substance: FOLIC ACID
  16. ATORVASTATIN [Concomitant]
     Active Substance: ATORVASTATIN
  17. IMBRUVICA [Suspect]
     Active Substance: IBRUTINIB
     Indication: CHRONIC LYMPHOCYTIC LEUKAEMIA
     Route: 048
     Dates: start: 20140904
  18. ASCORBIC ACID. [Concomitant]
     Active Substance: ASCORBIC ACID
  19. VITAMIN B [Concomitant]
     Active Substance: VITAMIN B
  20. XOPENEX [Concomitant]
     Active Substance: LEVALBUTEROL HYDROCHLORIDE
  21. SSKI [Concomitant]
     Active Substance: POTASSIUM IODIDE
  22. HUMALOG [Concomitant]
     Active Substance: INSULIN LISPRO
  23. TYLENOL [Concomitant]
     Active Substance: ACETAMINOPHEN
  24. ACETYLCYSTEINE. [Concomitant]
     Active Substance: ACETYLCYSTEINE
  25. ATROVENT [Concomitant]
     Active Substance: IPRATROPIUM BROMIDE
  26. SUDAFED [Concomitant]
     Active Substance: PSEUDOEPHEDRINE HYDROCHLORIDE
  27. ALPHA LIPOIC [Concomitant]
  28. FLUCONAZOLE. [Concomitant]
     Active Substance: FLUCONAZOLE
  29. FLUTICASONE [Concomitant]
     Active Substance: FLUTICASONE\FLUTICASONE PROPIONATE
  30. FERROUS SULFATE [Concomitant]
     Active Substance: FERROUS SULFATE\FERROUS SULFATE, DRIED

REACTIONS (6)
  - Oedema peripheral [Not Recovered/Not Resolved]
  - Cardiac failure congestive [Unknown]
  - Thyroid hormones decreased [Unknown]
  - Contusion [Unknown]
  - Pleural effusion [Not Recovered/Not Resolved]
  - Drug ineffective [Unknown]

NARRATIVE: CASE EVENT DATE: 2016
